FAERS Safety Report 10004066 (Version 2)
Quarter: 2014Q2

REPORT INFORMATION
  Report Type: Spontaneous
  Country: US (occurrence: US)
  Receive Date: 20140312
  Receipt Date: 20140611
  Transmission Date: 20141212
  Serious: No
  Sender: FDA-Public Use
  Company Number: US-INCYTE CORPORATION-2014IN000281

PATIENT
  Sex: Female

DRUGS (5)
  1. JAKAFI [Suspect]
     Indication: MYELOFIBROSIS
     Dosage: 5 MG, BID
     Route: 048
     Dates: start: 20121220
  2. SYNTHROID [Concomitant]
     Dosage: 100 MCG
     Route: 048
  3. HYDROCHLOROTHIAZIDE [Concomitant]
     Dosage: 25 MG
     Route: 048
  4. PRILOSEC                           /00661201/ [Concomitant]
     Dosage: 20 MG
     Route: 048
  5. BENZONATATE [Concomitant]

REACTIONS (2)
  - Diabetes mellitus [Unknown]
  - Urinary tract infection [Unknown]
